FAERS Safety Report 25180975 (Version 3)
Quarter: 2025Q4

REPORT INFORMATION
  Report Type: Report from Study
  Country: KR (occurrence: KR)
  Receive Date: 20250409
  Receipt Date: 20251103
  Transmission Date: 20260118
  Serious: Yes (Hospitalization)
  Sender: ABBVIE
  Company Number: KR-ABBVIE-6209207

PATIENT
  Age: 42 Year
  Sex: Female
  Weight: 67 kg

DRUGS (6)
  1. RINVOQ [Suspect]
     Active Substance: UPADACITINIB
     Indication: Crohn^s disease
     Route: 048
     Dates: start: 20250109, end: 20250308
  2. RINVOQ [Suspect]
     Active Substance: UPADACITINIB
     Indication: Crohn^s disease
     Route: 048
     Dates: start: 20250403
  3. RINVOQ [Suspect]
     Active Substance: UPADACITINIB
     Indication: Crohn^s disease
     Route: 048
     Dates: start: 20250312, end: 20250402
  4. Synerjet [Concomitant]
     Indication: Prophylaxis
     Route: 048
     Dates: start: 20250109, end: 20250113
  5. Impactamin [Concomitant]
     Indication: Prophylaxis
     Dosage: POWER TAB
     Route: 048
     Dates: start: 20240919
  6. Godex [Concomitant]
     Indication: Prophylaxis
     Route: 048
     Dates: start: 20250306

REACTIONS (1)
  - Abdominal pain [Recovered/Resolved]

NARRATIVE: CASE EVENT DATE: 20250309
